FAERS Safety Report 23250302 (Version 1)
Quarter: 2023Q4

REPORT INFORMATION
  Report Type: Spontaneous
  Country: DE (occurrence: DE)
  Receive Date: 20231201
  Receipt Date: 20231201
  Transmission Date: 20240110
  Serious: Yes (Hospitalization, Other)
  Sender: FDA-Public Use
  Company Number: DE-002147023-NVSC2023DE252385

PATIENT
  Sex: Female

DRUGS (1)
  1. KESIMPTA [Suspect]
     Active Substance: OFATUMUMAB
     Indication: Multiple sclerosis
     Dosage: UNK
     Route: 065
     Dates: start: 20230628

REACTIONS (4)
  - Eye disorder [Unknown]
  - Gait disturbance [Unknown]
  - Condition aggravated [Unknown]
  - Anti-JC virus antibody index [Unknown]

NARRATIVE: CASE EVENT DATE: 20230101
